FAERS Safety Report 8056365-5 (Version None)
Quarter: 2012Q1

REPORT INFORMATION
  Report Type: 
  Country: None (occurrence: None)
  Receive Date: 20120119
  Receipt Date: 20120117
  Transmission Date: 20120608
  Serious: Yes (Other)
  Sender: FDA-Public Use
  Company Number: BR-ROCHE-789374

PATIENT
  Sex: Female
  Weight: 101 kg

DRUGS (14)
  1. ANALGESIC NOS [Concomitant]
  2. LEVOTHYROXINE SODIUM [Concomitant]
  3. CLONAZEPAM [Concomitant]
  4. MABTHERA [Suspect]
     Indication: RHEUMATOID ARTHRITIS
     Route: 042
  5. PANTOPRAZOLE [Concomitant]
  6. DICLOFENAC SODIUM [Concomitant]
  7. LEVOTHYROXINE SODIUM [Concomitant]
  8. AMITRIPTYLINE HCL [Concomitant]
  9. KETOPROFEN [Concomitant]
  10. FLUX (FLUOXETINE) [Concomitant]
  11. GABAPENTIN [Concomitant]
  12. TYLEX (BRAZIL) [Concomitant]
  13. VEROTINA [Concomitant]
  14. NIMESULIDE [Concomitant]

REACTIONS (4)
  - ILL-DEFINED DISORDER [None]
  - SENSORY DISTURBANCE [None]
  - WEIGHT INCREASED [None]
  - OEDEMA PERIPHERAL [None]
